FAERS Safety Report 5155350-0 (Version None)
Quarter: 2006Q4

REPORT INFORMATION
  Report Type: 
  Country: None (occurrence: None)
  Receive Date: 20061121
  Receipt Date: 20061106
  Transmission Date: 20070319
  Serious: Yes (Life-Threatening)
  Sender: FDA-Public Use
  Company Number: GB-ABBOTT-06P-167-0349599-00

PATIENT
  Age: 60 Year
  Sex: Female
  Weight: 54 kg

DRUGS (6)
  1. HUMIRA [Suspect]
     Indication: DRUG USE FOR UNKNOWN INDICATION
     Route: 058
     Dates: start: 20060601
  2. ETANERCEPT [Concomitant]
     Indication: RHEUMATOID ARTHRITIS
     Dates: start: 20050101
  3. GOLD [Concomitant]
     Indication: RHEUMATOID ARTHRITIS
     Dates: start: 19950101
  4. METHOTREXATE [Concomitant]
     Indication: RHEUMATOID ARTHRITIS
     Dates: start: 19970101
  5. LEFULONAMIDE [Concomitant]
     Indication: RHEUMATOID ARTHRITIS
     Dates: start: 20020101, end: 20030101
  6. SULFASALAZINE [Concomitant]
     Indication: RHEUMATOID ARTHRITIS
     Dates: start: 19940101, end: 19950101

REACTIONS (1)
  - ACUTE LYMPHOCYTIC LEUKAEMIA [None]
